FAERS Safety Report 6361815-6 (Version None)
Quarter: 2009Q3

REPORT INFORMATION
  Report Type: 
  Country: None (occurrence: None)
  Receive Date: 20090918
  Receipt Date: 20090911
  Transmission Date: 20100115
  Serious: Yes (Hospitalization)
  Sender: FDA-Public Use
  Company Number: US-ABBOTT-09P-163-0596930-00

PATIENT
  Sex: Male
  Weight: 103.51 kg

DRUGS (4)
  1. HUMIRA [Suspect]
     Indication: PSORIASIS
     Route: 058
     Dates: start: 20090302
  2. METHOTREXATE [Concomitant]
     Indication: PSORIASIS
     Dates: start: 19950929
  3. RAPTIVA [Concomitant]
     Indication: PSORIASIS
     Dates: start: 20031101
  4. AMEVIVE [Concomitant]
     Indication: PSORIASIS
     Dates: start: 20000101

REACTIONS (2)
  - COUGH [None]
  - LOSS OF CONSCIOUSNESS [None]
